FAERS Safety Report 8078536-4 (Version None)
Quarter: 2012Q1

REPORT INFORMATION
  Report Type: 
  Country: None (occurrence: None)
  Receive Date: 20120127
  Receipt Date: 20110103
  Transmission Date: 20120608
  Serious: No
  Sender: FDA-Public Use
  Company Number: US-ABBOTT-11P-163-0694957-00

PATIENT
  Age: 64 Year
  Sex: Male

DRUGS (7)
  1. ASPIRIN [Concomitant]
     Indication: ANTICOAGULANT THERAPY
  2. METOPROLOL TARTRATE [Concomitant]
     Indication: BLOOD PRESSURE
  3. FISH OIL [Concomitant]
     Indication: VITAMIN SUPPLEMENTATION
  4. SIMVASTATIN [Concomitant]
     Indication: BLOOD CHOLESTEROL
  5. LEVOTHYROXINE SODIUM [Concomitant]
     Indication: THYROID DISORDER
  6. HUMIRA [Suspect]
     Indication: PSORIASIS
     Dates: start: 20101001
  7. LISINOPRIL [Concomitant]
     Indication: BLOOD PRESSURE

REACTIONS (1)
  - NASOPHARYNGITIS [None]
